FAERS Safety Report 5287874-X (Version None)
Quarter: 2007Q2

REPORT INFORMATION
  Report Type: 
  Country: None (occurrence: None)
  Receive Date: 20070403
  Receipt Date: 20070403
  Transmission Date: 20071010
  Serious: Yes (Other)
  Sender: FDA-Public Use
  Company Number: None

PATIENT
  Sex: Female
  Weight: 52.1637 kg

DRUGS (1)
  1. MAGNEVIST [Suspect]
     Indication: PELVIC PAIN
     Dosage: 10ML ONCE IV
     Route: 042
     Dates: start: 20070402, end: 20070402

REACTIONS (1)
  - URTICARIA [None]
